FAERS Safety Report 10146772 (Version 1)
Quarter: 2014Q2

REPORT INFORMATION
  Report Type: Spontaneous
  Country: DK (occurrence: FR)
  Receive Date: 20140501
  Receipt Date: 20140501
  Transmission Date: 20141212
  Serious: Yes (Hospitalization)
  Sender: FDA-Public Use
  Company Number: FR-FRI-1000066942

PATIENT
  Age: 4 Day
  Sex: Female
  Weight: 3.49 kg

DRUGS (4)
  1. ESCITALOPRAM [Suspect]
     Dosage: 15 MG
     Route: 064
     Dates: start: 20131206
  2. ESCITALOPRAM [Suspect]
     Dosage: 20 MG
     Route: 064
     Dates: start: 20140131
  3. LEXOMIL ROCHE [Suspect]
     Route: 064
  4. RITALINE [Concomitant]
     Dosage: 60 MG
     Route: 064
     Dates: start: 201306, end: 2013

REACTIONS (3)
  - Tremor [Recovered/Resolved]
  - Nervousness [Recovered/Resolved]
  - Foetal exposure during pregnancy [Recovered/Resolved]
